FAERS Safety Report 23707821 (Version 2)
Quarter: 2024Q2

REPORT INFORMATION
  Report Type: Report from Study
  Country: US (occurrence: US)
  Receive Date: 20240404
  Receipt Date: 20240423
  Transmission Date: 20240716
  Serious: Yes (Hospitalization)
  Sender: FDA-Public Use
  Company Number: US-TEVA-VS-3175679

PATIENT
  Age: 66 Year
  Sex: Male
  Weight: 105.1 kg

DRUGS (6)
  1. CARBOPLATIN [Suspect]
     Active Substance: CARBOPLATIN
     Indication: Lung adenocarcinoma
     Route: 042
     Dates: start: 20230907, end: 20231019
  2. PEMETREXED DISODIUM [Suspect]
     Active Substance: PEMETREXED DISODIUM
     Indication: Lung adenocarcinoma
     Dosage: POWDER, LYOPHILIZED FOR SOLUTION FOR INTRAVENOUS USE
     Route: 042
     Dates: start: 20230907, end: 20231019
  3. PROSCAR [Concomitant]
     Active Substance: FINASTERIDE
  4. FOLVITE [Concomitant]
     Active Substance: FOLIC ACID
     Dates: start: 20230831
  5. CIALIS [Concomitant]
     Active Substance: TADALAFIL
  6. FLOMAX [Concomitant]
     Active Substance: TAMSULOSIN HYDROCHLORIDE

REACTIONS (1)
  - Gastroenteritis viral [Recovered/Resolved]

NARRATIVE: CASE EVENT DATE: 20231024
